FAERS Safety Report 21520789 (Version 1)
Quarter: 2022Q4

REPORT INFORMATION
  Report Type: Report from Study
  Country: AU (occurrence: AU)
  Receive Date: 20221028
  Receipt Date: 20221028
  Transmission Date: 20230113
  Serious: Yes (Hospitalization, Other)
  Sender: FDA-Public Use
  Company Number: AU-BoehringerIngelheim-2021-BI-116735

PATIENT
  Age: 75 Year
  Sex: Male
  Weight: 111 kg

DRUGS (7)
  1. SPESOLIMAB [Suspect]
     Active Substance: SPESOLIMAB
     Indication: Palmoplantar pustulosis
     Route: 058
     Dates: start: 20210107, end: 20210701
  2. METFORMIN [Concomitant]
     Active Substance: METFORMIN HYDROCHLORIDE
     Indication: Type 2 diabetes mellitus
     Route: 048
     Dates: start: 20051215
  3. MONOXIDINE [Concomitant]
     Indication: Hypertension
     Route: 048
     Dates: start: 201610
  4. LANTUS [Concomitant]
     Active Substance: INSULIN GLARGINE
     Indication: Type 2 diabetes mellitus
     Route: 058
     Dates: start: 201812
  5. LANTAPROST EYE DROPS [Concomitant]
     Indication: Intraocular pressure increased
     Dosage: 1 DROP BILATERALLY
     Route: 031
     Dates: start: 20200801
  6. PREDNISOLONE [Concomitant]
     Active Substance: PREDNISOLONE
     Indication: Arthritis
     Route: 048
     Dates: start: 20210401
  7. ACETAMINOPHEN\CODEINE PHOSPHATE [Concomitant]
     Active Substance: ACETAMINOPHEN\CODEINE PHOSPHATE
     Indication: Back pain
     Dosage: UNIT DOSE: 1000/30 MG
     Route: 048
     Dates: start: 20210603

REACTIONS (2)
  - Paraspinal abscess [Not Recovered/Not Resolved]
  - Staphylococcal bacteraemia [Not Recovered/Not Resolved]

NARRATIVE: CASE EVENT DATE: 20210603
